FAERS Safety Report 7148603-8 (Version None)
Quarter: 2010Q4

REPORT INFORMATION
  Report Type: 
  Country: None (occurrence: None)
  Receive Date: 20101209
  Receipt Date: 20100223
  Transmission Date: 20110411
  Serious: No
  Sender: FDA-Public Use
  Company Number: A0848184A

PATIENT
  Sex: Female

DRUGS (2)
  1. AVANDAMET [Suspect]
     Indication: BLOOD GLUCOSE
     Route: 065
     Dates: start: 20090101
  2. LISINOPRIL [Concomitant]
     Indication: HYPERTENSION

REACTIONS (2)
  - BLOOD GLUCOSE DECREASED [None]
  - RASH MACULAR [None]
